FAERS Safety Report 4840524-6 (Version None)
Quarter: 2005Q4

REPORT INFORMATION
  Report Type: 
  Country: None (occurrence: None)
  Receive Date: 20051130
  Receipt Date: 20050915
  Transmission Date: 20060501
  Serious: Yes (Other)
  Sender: FDA-Public Use
  Company Number: US-BRISTOL-MYERS SQUIBB COMPANY-13113568

PATIENT
  Age: 49 Year
  Sex: Female

DRUGS (2)
  1. ERBITUX [Suspect]
     Indication: NEOPLASM MALIGNANT
     Route: 042
     Dates: start: 20050824, end: 20050824
  2. CISPLATIN [Concomitant]
     Route: 042
     Dates: start: 20050824

REACTIONS (1)
  - URTICARIA [None]
